FAERS Safety Report 8124257-9 (Version None)
Quarter: 2012Q1

REPORT INFORMATION
  Report Type: 
  Country: None (occurrence: None)
  Receive Date: 20120209
  Receipt Date: 20120118
  Transmission Date: 20120608
  Serious: Yes (Hospitalization, Disabling)
  Sender: FDA-Public Use
  Company Number: US-BAYER-2011-058330

PATIENT
  Age: 40 Year
  Sex: Female
  Weight: 52 kg

DRUGS (6)
  1. OTHER ANALGESICS AND ANTIPYRETICS [Concomitant]
     Indication: MIGRAINE
  2. YASMIN [Suspect]
     Indication: PREMENSTRUAL SYNDROME
     Dosage: UNK
     Dates: start: 20020101, end: 20100901
  3. YAZ [Suspect]
     Indication: PREMENSTRUAL SYNDROME
     Dosage: UNK
     Dates: start: 20020101, end: 20100901
  4. TOPAMAX [Concomitant]
     Indication: MIGRAINE
     Dosage: UNK
     Dates: start: 20060101
  5. LEXAPRO [Concomitant]
     Indication: DEPRESSION
     Dosage: UNK
  6. RANITIDINE [Concomitant]
     Indication: GASTROOESOPHAGEAL REFLUX DISEASE
     Dosage: UNK
     Dates: start: 20090126, end: 20100716

REACTIONS (9)
  - GALLBLADDER DISORDER [None]
  - ANXIETY [None]
  - ANHEDONIA [None]
  - ABDOMINAL PAIN [None]
  - INJURY [None]
  - GASTROINTESTINAL DISORDER [None]
  - BILE DUCT STONE [None]
  - CHOLECYSTITIS CHRONIC [None]
  - PAIN [None]
